FAERS Safety Report 8420857-7 (Version None)
Quarter: 2012Q2

REPORT INFORMATION
  Report Type: 
  Country: None (occurrence: None)
  Receive Date: 20120531
  Receipt Date: 20120529
  Transmission Date: 20120825
  Serious: Yes (Life-Threatening, Hospitalization)
  Sender: FDA-Public Use
  Company Number: ADR-2012-00857

PATIENT
  Sex: Male

DRUGS (3)
  1. BACLOFEN [Concomitant]
  2. BACLOFEN [Suspect]
     Indication: MUSCLE SPASTICITY
  3. BACLOFEN [Suspect]
     Indication: PARAPARESIS

REACTIONS (6)
  - PNEUMONIA [None]
  - FEELING ABNORMAL [None]
  - SUICIDE ATTEMPT [None]
  - DRUG INEFFECTIVE [None]
  - PAIN IN EXTREMITY [None]
  - VOMITING [None]
